FAERS Safety Report 8886897 (Version 2)
Quarter: 2012Q4

REPORT INFORMATION
  Report Type: 
  Country: VE (occurrence: VE)
  Receive Date: 20121105
  Receipt Date: 20121112
  Transmission Date: 20130627
  Serious: Yes (Other)
  Sender: FDA-Public Use
  Company Number: VE-PFIZER INC-2012272692

PATIENT
  Age: 8 Year
  Sex: Male
  Weight: 12 kg

DRUGS (1)
  1. GENOTROPIN [Suspect]
     Indication: GROWTH HORMONE DEFICIENCY
     Dosage: UNK mg, 1x/day
     Route: 058
     Dates: start: 2008, end: 2008

REACTIONS (1)
  - Balance disorder [Not Recovered/Not Resolved]
